FAERS Safety Report 12615757 (Version 1)
Quarter: 2016Q3

REPORT INFORMATION
  Report Type: Spontaneous
  Country: US (occurrence: PR)
  Receive Date: 20160802
  Receipt Date: 20160802
  Transmission Date: 20161109
  Serious: No
  Sender: FDA-Public Use
  Company Number: US-BRISTOL-MYERS SQUIBB COMPANY-BMS-2016-062187

PATIENT
  Age: 32 Year
  Sex: Male

DRUGS (2)
  1. YERVOY [Suspect]
     Active Substance: IPILIMUMAB
     Indication: MALIGNANT MELANOMA
     Dosage: 319 MG, UNK
     Route: 065
     Dates: start: 20160602
  2. YERVOY [Suspect]
     Active Substance: IPILIMUMAB
     Dosage: 319 MG, UNK
     Route: 065
     Dates: start: 20160623

REACTIONS (2)
  - Blood alkaline phosphatase increased [Unknown]
  - Hepatic enzyme increased [Unknown]

NARRATIVE: CASE EVENT DATE: 20160623
